FAERS Safety Report 7023878-4 (Version None)
Quarter: 2010Q3

REPORT INFORMATION
  Report Type: 
  Country: None (occurrence: None)
  Receive Date: 20100916
  Receipt Date: 20100726
  Transmission Date: 20110219
  Serious: Yes (Other)
  Sender: FDA-Public Use
  Company Number: DKLU1064011

PATIENT
  Age: 5 Year
  Sex: Female

DRUGS (5)
  1. SABRIL [Suspect]
     Indication: EPILEPSY
     Dosage: 1050 MG MILLIGRAM(S), 2 IN 1 D, ORAL
     Route: 048
     Dates: start: 20100501
  2. ZONEGRAN [Concomitant]
  3. KEPPRA [Concomitant]
  4. DEPAKOTE [Concomitant]
  5. LAMICTAL [Concomitant]

REACTIONS (2)
  - CONVULSION [None]
  - DRUG INEFFECTIVE [None]
